FAERS Safety Report 19474806 (Version 5)
Quarter: 2021Q3

REPORT INFORMATION
  Report Type: Spontaneous
  Country: US (occurrence: US)
  Receive Date: 20210629
  Receipt Date: 20210728
  Transmission Date: 20211014
  Serious: No
  Sender: FDA-Public Use
  Company Number: US-SA-2021SA204214

PATIENT
  Age: 70 Year
  Sex: Female

DRUGS (1)
  1. TOUJEO MAX [Suspect]
     Active Substance: INSULIN GLARGINE
     Indication: DIABETES MELLITUS
     Dosage: 10 IU, QD
     Route: 065
     Dates: start: 202103

REACTIONS (4)
  - Blood glucose increased [Unknown]
  - Illness [Unknown]
  - Tremor [Unknown]
  - Product storage error [Unknown]

NARRATIVE: CASE EVENT DATE: 20210412
